FAERS Safety Report 8770852 (Version 2)
Quarter: 2012Q4

REPORT INFORMATION
  Report Type: 
  Country: US (occurrence: US)
  Receive Date: 20120906
  Receipt Date: 20120918
  Transmission Date: 20130627
  Serious: Yes (Hospitalization, Other)
  Sender: FDA-Public Use
  Company Number: US-SANOFI-AVENTIS-2012SA061855

PATIENT
  Age: 64 Year
  Sex: Female

DRUGS (7)
  1. LASIX [Suspect]
     Indication: DRUG USE FOR UNKNOWN INDICATION
     Route: 048
     Dates: start: 20111201, end: 201204
  2. BLINDED THERAPY [Concomitant]
     Indication: TYPE 2 DIABETES MELLITUS
     Dates: start: 20110909
  3. NOVOLOG [Concomitant]
     Indication: TYPE 2 DIABETES MELLITUS
     Route: 065
  4. APRESOLINE [Concomitant]
  5. CYANOCOBALAMIN [Concomitant]
     Dates: start: 20120409
  6. ASPIRIN [Concomitant]
  7. QUINAPRIL [Concomitant]

REACTIONS (3)
  - Pernicious anaemia [Recovered/Resolved]
  - Musculoskeletal chest pain [Recovered/Resolved]
  - Renal failure acute [Recovered/Resolved with Sequelae]
